FAERS Safety Report 21334432 (Version 2)
Quarter: 2024Q2

REPORT INFORMATION
  Report Type: Spontaneous
  Country: US (occurrence: US)
  Receive Date: 20220914
  Receipt Date: 20240618
  Transmission Date: 20240716
  Serious: No
  Sender: FDA-Public Use
  Company Number: US-SUNOVION-2022SUN002652AA

PATIENT

DRUGS (2)
  1. XOPENEX HFA [Suspect]
     Active Substance: LEVALBUTEROL TARTRATE
     Indication: Lung disorder
     Dosage: UNK
     Route: 055
  2. XOPENEX HFA [Suspect]
     Active Substance: LEVALBUTEROL TARTRATE
     Dosage: UNK AS NEEDED
     Dates: start: 20240603, end: 20240605

REACTIONS (9)
  - Nervousness [Recovered/Resolved]
  - Psychomotor hyperactivity [Unknown]
  - Throat irritation [Unknown]
  - Device issue [Unknown]
  - Device difficult to use [Unknown]
  - Device malfunction [Unknown]
  - Device dispensing error [Unknown]
  - Incorrect dose administered [Unknown]
  - Product quality issue [Unknown]

NARRATIVE: CASE EVENT DATE: 20240601
